FAERS Safety Report 4815760-5 (Version None)
Quarter: 2005Q4

REPORT INFORMATION
  Report Type: 
  Country: None (occurrence: None)
  Receive Date: 20051031
  Receipt Date: 20050818
  Transmission Date: 20060501
  Serious: Yes (Death)
  Sender: FDA-Public Use
  Company Number: DE-MERCK-0508DEU00136

PATIENT
  Age: 78 Year
  Sex: Female
  Weight: 65 kg

DRUGS (9)
  1. FOSAMAX [Suspect]
     Indication: OSTEOPOROSIS
     Route: 048
     Dates: start: 20040901, end: 20050811
  2. MIRTAZAPINE [Concomitant]
     Route: 065
  3. RISPERIDONE [Concomitant]
     Route: 065
  4. PROPRANOLOL HYDROCHLORIDE [Concomitant]
     Route: 065
  5. XIPAMIDE [Concomitant]
     Route: 065
  6. NIFEDIPINE [Concomitant]
     Route: 065
  7. CALCIUM (UNSPECIFIED) AND VITAMIN D (UNSPECIFIED) [Concomitant]
     Route: 065
  8. [THERAPY UNSPECIFIED] [Concomitant]
     Route: 065
  9. [THERAPY UNSPECIFIED] [Concomitant]
     Route: 065

REACTIONS (3)
  - CARDIAC DISORDER [None]
  - MYOCARDIAL INFARCTION [None]
  - NAUSEA [None]
